FAERS Safety Report 5446894-2 (Version None)
Quarter: 2007Q3

REPORT INFORMATION
  Report Type: 
  Country: None (occurrence: None)
  Receive Date: 20070802
  Receipt Date: 20070215
  Transmission Date: 20080115
  Serious: Yes (Other)
  Sender: FDA-Public Use
  Company Number: US-JNJFOC-20070203811

PATIENT
  Age: 36 Month
  Sex: Male
  Weight: 21.7727 kg

DRUGS (1)
  1. CHILDREN'S MOTRIN [Suspect]
     Indication: PYREXIA
     Dosage: ^MORE THAN 1 SPOON^
     Dates: start: 20070215, end: 20070215

REACTIONS (2)
  - SWELLING FACE [None]
  - WHEEZING [None]
